FAERS Safety Report 6278469-X (Version None)
Quarter: 2009Q3

REPORT INFORMATION
  Report Type: 
  Country: None (occurrence: None)
  Receive Date: 20090721
  Receipt Date: 20090703
  Transmission Date: 20100115
  Serious: Yes (Death, Hospitalization)
  Sender: FDA-Public Use
  Company Number: CFNT-359

PATIENT
  Age: 81 Year
  Sex: Male

DRUGS (10)
  1. MEIACT MS TABLET (CEFDITOREN PIVOXIL) [Suspect]
     Indication: PHARYNGITIS
     Dosage: 300MG BY MOUTH
     Dates: start: 20090423, end: 20090507
  2. PL (SALICYLAMIDE/ACETAMINOPHEN/ANHYDROUS CAFFEINE/PROMETHAZINE METHYLE [Suspect]
     Indication: PHARYNGITIS
     Dosage: 3 G P.O.
     Route: 048
     Dates: start: 20090423, end: 20090427
  3. ALLELOCK (OLOPATADINE HYDROCHLORIDE) [Suspect]
     Indication: RHINITIS
     Dosage: 10 MG P.O.
     Route: 048
     Dates: start: 20090423, end: 20090427
  4. CYTOTEC [Suspect]
     Indication: GASTRITIS
     Dosage: 300 MG P.O.
     Route: 048
     Dates: start: 20090423, end: 20090502
  5. VOLTAREN [Suspect]
     Indication: ARTHRITIS
     Dosage: 75 MG P.O.
     Route: 048
     Dates: start: 20090423, end: 20090502
  6. L-CARBOCISTEINE [Concomitant]
  7. TEPRENONE [Concomitant]
  8. TELMISARTAN [Concomitant]
  9. BENIDIPINE HYDROCHLORIDE [Concomitant]
  10. AMBROXOL HYDROCHLORIDE [Concomitant]

REACTIONS (3)
  - HEPATITIS FULMINANT [None]
  - PLATELET COUNT DECREASED [None]
  - RENAL FAILURE ACUTE [None]
